FAERS Safety Report 7283376-X (Version None)
Quarter: 2011Q1

REPORT INFORMATION
  Report Type: 
  Country: None (occurrence: None)
  Receive Date: 20110209
  Receipt Date: 20100713
  Transmission Date: 20110831
  Serious: Yes (Other)
  Sender: FDA-Public Use
  Company Number: A0870198A

PATIENT
  Age: 36 Year
  Sex: Female

DRUGS (3)
  1. VITAMIN D [Concomitant]
  2. XANAX [Concomitant]
  3. PAXIL [Suspect]
     Indication: ANXIETY
     Route: 048
     Dates: start: 20000101

REACTIONS (3)
  - WEIGHT INCREASED [None]
  - HEPATIC ENZYME INCREASED [None]
  - ANAEMIA [None]
